FAERS Safety Report 13447127 (Version 1)
Quarter: 2017Q2

REPORT INFORMATION
  Report Type: Spontaneous
  Country: US (occurrence: US)
  Receive Date: 20170415
  Receipt Date: 20170415
  Transmission Date: 20170830
  Serious: No
  Sender: FDA-Public Use
  Company Number: None

PATIENT
  Age: 53 Year
  Sex: Female
  Weight: 74.25 kg

DRUGS (10)
  1. ATENOLOL 50 MG [Suspect]
     Active Substance: ATENOLOL
     Indication: HYPERTENSION
     Route: 048
     Dates: start: 20170126, end: 20170414
  2. BISOPROLOL [Concomitant]
     Active Substance: BISOPROLOL
  3. ZOLOFT [Concomitant]
     Active Substance: SERTRALINE HYDROCHLORIDE
  4. SAW PALMETTO [Concomitant]
     Active Substance: HERBALS\SAW PALMETTO
  5. LIPTITOR [Concomitant]
  6. GLUCOSAMINE/CHONDROITIN /08437701/ [Concomitant]
     Active Substance: CHONDROITIN SULFATE (BOVINE)\GLUCOSAMINE SULFATE
  7. CALCIUM [Concomitant]
     Active Substance: CALCIUM
  8. ASPIRIN. [Concomitant]
     Active Substance: ASPIRIN
  9. VITAMIN D3 [Concomitant]
     Active Substance: CHOLECALCIFEROL
  10. VITAMIN C [Concomitant]
     Active Substance: ASCORBIC ACID

REACTIONS (2)
  - Fatigue [None]
  - Myalgia [None]

NARRATIVE: CASE EVENT DATE: 20170330
